FAERS Safety Report 23282336 (Version 4)
Quarter: 2024Q3

REPORT INFORMATION
  Report Type: Spontaneous
  Country: US (occurrence: US)
  Receive Date: 20231211
  Receipt Date: 20240712
  Transmission Date: 20241016
  Serious: Yes (Hospitalization, Other)
  Sender: INCYTE
  Company Number: US-INCYTE CORPORATION-2023IN012554

PATIENT

DRUGS (3)
  1. JAKAFI [Suspect]
     Active Substance: RUXOLITINIB
     Indication: Essential thrombocythaemia
     Dosage: 5 MILLIGRAM, QD
     Route: 048
     Dates: start: 20231109
  2. JAKAFI [Suspect]
     Active Substance: RUXOLITINIB
     Dosage: 5 MILLIGRAM, ONE DAY ON, ONE DAY OFF
     Route: 048
     Dates: start: 20231210
  3. JAKAFI [Suspect]
     Active Substance: RUXOLITINIB
     Dosage: 5 MILLIGRAM THREE TABS DAILY (2 TABLETS IN THE MORNING AND 1 TABLET AT NIGHT)
     Route: 048
     Dates: start: 20231109

REACTIONS (6)
  - Haemoglobin decreased [Recovering/Resolving]
  - Platelet count increased [Unknown]
  - Back pain [Unknown]
  - Headache [Unknown]
  - Platelet count decreased [Unknown]
  - Off label use [Unknown]

NARRATIVE: CASE EVENT DATE: 20231109
